FAERS Safety Report 9372192 (Version 2)
Quarter: 2013Q3

REPORT INFORMATION
  Report Type: Spontaneous
  Country: DE (occurrence: DE)
  Receive Date: 20130627
  Receipt Date: 20130729
  Transmission Date: 20140515
  Serious: Yes (Other)
  Sender: FDA-Public Use
  Company Number: DE-JNJFOC-20130613642

PATIENT
  Sex: Male

DRUGS (1)
  1. NICORETTE KAUGUMMI 2MG FRESHMINT [Suspect]
     Indication: SMOKING CESSATION THERAPY
     Dosage: UP TO 10 GUMS PER DAY, INITIATED ON AN UNSPECIFIED DATE 5 YEARS AGO
     Route: 048
     Dates: start: 2008

REACTIONS (3)
  - Nicotine dependence [Not Recovered/Not Resolved]
  - Intentional drug misuse [Unknown]
  - Product quality issue [None]
